FAERS Safety Report 26151340 (Version 1)
Quarter: 2025Q4

REPORT INFORMATION
  Report Type: Report from Study
  Country: EU (occurrence: None)
  Receive Date: 20251212
  Receipt Date: 20251212
  Transmission Date: 20260118
  Serious: Yes (Hospitalization, Other)
  Sender: UCB
  Company Number: EU-UCBSA-2025077989

PATIENT

DRUGS (1)
  1. ZILUCOPLAN [Suspect]
     Active Substance: ZILUCOPLAN
     Indication: Myasthenia gravis
     Dosage: DAILY 0.3 MG/KG (16.6 MG, 23 MG, OR 32.4 MG DEPENDING ON BODY WEIGHT)

REACTIONS (8)
  - Myasthenia gravis [Unknown]
  - Infection [Unknown]
  - Morphoea [Unknown]
  - Adverse event [Unknown]
  - Injection site reaction [Unknown]
  - Nausea [Unknown]
  - Headache [Unknown]
  - Rheumatic disorder [Unknown]
